FAERS Safety Report 6141159-8 (Version None)
Quarter: 2009Q2

REPORT INFORMATION
  Report Type: 
  Country: None (occurrence: None)
  Receive Date: 20090401
  Receipt Date: 20090401
  Transmission Date: 20091009
  Serious: Yes (Hospitalization)
  Sender: FDA-Public Use
  Company Number: None

PATIENT
  Age: 62 Year
  Sex: Male
  Weight: 103.28 kg

DRUGS (1)
  1. DEXMEDETOMIDINE [Suspect]
     Indication: SURGERY
     Dosage: 100 MCG QWEEK IV
     Route: 042
     Dates: start: 20080905, end: 20080905

REACTIONS (7)
  - ANGINA PECTORIS [None]
  - ANXIETY [None]
  - BLOOD PRESSURE INCREASED [None]
  - BRADYCARDIA [None]
  - DYSPNOEA [None]
  - ILL-DEFINED DISORDER [None]
  - TROPONIN INCREASED [None]
